FAERS Safety Report 9662268 (Version 2)
Quarter: 2013Q4

REPORT INFORMATION
  Report Type: Spontaneous
  Country: US (occurrence: US)
  Receive Date: 20131031
  Receipt Date: 20131031
  Transmission Date: 20140711
  Serious: No
  Sender: FDA-Public Use
  Company Number: US-PURDUE-USA-2010-0047937

PATIENT
  Sex: Male
  Weight: 102.4 kg

DRUGS (2)
  1. OXYCONTIN (NDA 22-272) [Suspect]
     Indication: BACK PAIN
     Dosage: 320 MG, Q12H
  2. OXYCONTIN (NDA 22-272) [Suspect]
     Indication: MUSCULOSKELETAL DISCOMFORT

REACTIONS (2)
  - Medication residue present [Recovered/Resolved]
  - Inadequate analgesia [Recovered/Resolved]
